FAERS Safety Report 6668890-X (Version None)
Quarter: 2010Q2

REPORT INFORMATION
  Report Type: 
  Country: None (occurrence: None)
  Receive Date: 20100406
  Receipt Date: 20100329
  Transmission Date: 20101027
  Serious: Yes (Hospitalization, Other)
  Sender: FDA-Public Use
  Company Number: ES-ROCHE-694016

PATIENT
  Age: 66 Year
  Sex: Female

DRUGS (8)
  1. CAPECITABINE [Suspect]
     Indication: BREAST CANCER
     Route: 048
  2. CAPECITABINE [Interacting]
     Dosage: DOSAGE REDUCED
     Route: 048
  3. CAPECITABINE [Interacting]
     Route: 048
  4. BRIVUDIN [Interacting]
     Indication: HERPES ZOSTER
     Route: 065
  5. OMEPRAZOLE [Concomitant]
     Indication: DYSPEPSIA
     Dosage: FREQUENCY DAILY
  6. DOXORUBICIN HCL [Concomitant]
     Indication: BREAST CANCER
     Route: 042
  7. CYCLOPHOSPHAMIDE [Concomitant]
     Indication: BREAST CANCER
     Route: 042
  8. DOCETAXEL [Concomitant]
     Indication: BREAST CANCER
     Dosage: VIA 60 MIN INTRAVENOUS INFUSION
     Route: 042

REACTIONS (10)
  - ABDOMINAL PAIN [None]
  - BONE MARROW FAILURE [None]
  - DRUG INTERACTION [None]
  - FEBRILE NEUTROPENIA [None]
  - MELAENA [None]
  - ONYCHOLYSIS [None]
  - PALMAR-PLANTAR ERYTHRODYSAESTHESIA SYNDROME [None]
  - PHARYNGEAL INFLAMMATION [None]
  - STOMATITIS [None]
  - TOOTH DISCOLOURATION [None]
